FAERS Safety Report 16092947 (Version 3)
Quarter: 2019Q4

REPORT INFORMATION
  Report Type: Spontaneous
  Country: GR (occurrence: GR)
  Receive Date: 20190320
  Receipt Date: 20191111
  Transmission Date: 20200122
  Serious: Yes (Death, Life-Threatening, Hospitalization, Other)
  Sender: FDA-Public Use
  Company Number: GR-AUROBINDO-AUR-APL-2019-014719

PATIENT
  Age: 81 Year
  Sex: Female

DRUGS (8)
  1. SALICYLIC ACID. [Concomitant]
     Active Substance: SALICYLIC ACID
     Indication: ISCHAEMIA
  2. IRBESARTAN AND HYDROCHLOROTHIAZIDE [Concomitant]
     Active Substance: HYDROCHLOROTHIAZIDE\IRBESARTAN
     Indication: HYPERTENSION
     Dosage: UNK
     Route: 065
  3. ATORVASTATIN [Concomitant]
     Active Substance: ATORVASTATIN
     Indication: ISCHAEMIA
  4. SALICYLIC ACID. [Concomitant]
     Active Substance: SALICYLIC ACID
     Indication: ISCHAEMIC STROKE
     Dosage: UNK
     Route: 065
  5. ATORVASTATIN [Concomitant]
     Active Substance: ATORVASTATIN
     Indication: ISCHAEMIC STROKE
     Dosage: UNK
     Route: 065
  6. IRBESARTAN. [Concomitant]
     Active Substance: IRBESARTAN
     Indication: HYPERTENSION
     Dosage: UNK
     Route: 065
  7. HYDROCHLOROTHIAZIDE. [Suspect]
     Active Substance: HYDROCHLOROTHIAZIDE
     Indication: HYPERTENSION
     Dosage: UNK
     Route: 065
  8. METFORMIN [Suspect]
     Active Substance: METFORMIN HYDROCHLORIDE
     Indication: DIABETES MELLITUS
     Dosage: UNK
     Route: 065

REACTIONS (11)
  - Metabolic acidosis [Unknown]
  - Abdominal pain [Unknown]
  - Cardiac arrest [Fatal]
  - Renal impairment [Not Recovered/Not Resolved]
  - Vomiting [Unknown]
  - Acute abdomen [Unknown]
  - Myocardial infarction [Fatal]
  - Lactic acidosis [Not Recovered/Not Resolved]
  - Acute kidney injury [Not Recovered/Not Resolved]
  - Dehydration [Not Recovered/Not Resolved]
  - Gastrointestinal oedema [Unknown]
